FAERS Safety Report 8964608 (Version 9)
Quarter: 2013Q3

REPORT INFORMATION
  Report Type: Report from Study
  Country: DE (occurrence: DE)
  Receive Date: 20121214
  Receipt Date: 20130904
  Transmission Date: 20140515
  Serious: Yes (Hospitalization)
  Sender: FDA-Public Use
  Company Number: DE-CELGENEUS-062-21660-12120486

PATIENT
  Age: 73 Year
  Sex: Female
  Weight: 97 kg

DRUGS (12)
  1. ABRAXANE [Suspect]
     Indication: BREAST CANCER
     Route: 041
     Dates: start: 20120906
  2. ABRAXANE [Suspect]
     Route: 041
     Dates: start: 20121108
  3. EPIRUBICIN [Suspect]
     Indication: BREAST CANCER
     Route: 041
     Dates: start: 20121130, end: 20121219
  4. CYCLOPHOSPHAMIDE [Suspect]
     Indication: BREAST CANCER
     Route: 041
     Dates: start: 20121130, end: 20121230
  5. HYDROCHLOROTHIAZIDE [Concomitant]
     Indication: PRODUCT USED FOR UNKNOWN INDICATION
     Dosage: 6.25 MILLIGRAM
     Route: 065
     Dates: start: 2007
  6. HYDROCHLOROTHIAZIDE [Concomitant]
     Dosage: 12.5 MILLIGRAM
     Route: 065
  7. JODTHYROX [Concomitant]
     Indication: PRODUCT USED FOR UNKNOWN INDICATION
     Dosage: 100 MILLIGRAM
     Route: 065
     Dates: start: 1998
  8. BELOC-ZOK [Concomitant]
     Indication: PRODUCT USED FOR UNKNOWN INDICATION
     Route: 065
  9. BELOC-ZOK [Concomitant]
     Dosage: 28.95 MILLIGRAM
     Route: 065
  10. BIOPROX [Concomitant]
     Indication: PRODUCT USED FOR UNKNOWN INDICATION
     Route: 065
  11. FERROSAN [Concomitant]
     Indication: PRODUCT USED FOR UNKNOWN INDICATION
     Dosage: 80 MILLIGRAM
     Route: 065
  12. BLOPRESS [Concomitant]
     Indication: PRODUCT USED FOR UNKNOWN INDICATION
     Route: 065

REACTIONS (3)
  - Ankle fracture [Recovered/Resolved]
  - Fatigue [Recovered/Resolved]
  - Pneumonia [Recovered/Resolved]
